FAERS Safety Report 16449723 (Version 2)
Quarter: 2019Q3

REPORT INFORMATION
  Report Type: Spontaneous
  Country: JP (occurrence: JP)
  Receive Date: 20190619
  Receipt Date: 20190906
  Transmission Date: 20191004
  Serious: Yes (Hospitalization)
  Sender: FDA-Public Use
  Company Number: JP-ACTELION-A-CH2019-191807

PATIENT
  Age: 83 Year
  Sex: Male

DRUGS (2)
  1. OPSUMIT [Suspect]
     Active Substance: MACITENTAN
     Dosage: UNK
     Route: 048
  2. OPSUMIT [Suspect]
     Active Substance: MACITENTAN
     Indication: PULMONARY ARTERIAL HYPERTENSION
     Dosage: 10 MG, OD
     Route: 048
     Dates: start: 20190501

REACTIONS (4)
  - Erythema [Recovering/Resolving]
  - Peripheral venous disease [Recovered/Resolved]
  - Left ventricular failure [Recovered/Resolved]
  - Pleural effusion [Recovered/Resolved]
